FAERS Safety Report 6567556-4 (Version None)
Quarter: 2010Q1

REPORT INFORMATION
  Report Type: 
  Country: None (occurrence: None)
  Receive Date: 20100202
  Receipt Date: 20100118
  Transmission Date: 20100710
  Serious: Yes (Hospitalization)
  Sender: FDA-Public Use
  Company Number: ES-GENENTECH-297370

PATIENT
  Sex: Male
  Weight: 86 kg

DRUGS (1)
  1. RANIBIZUMAB [Suspect]
     Indication: DIABETIC RETINAL OEDEMA
     Dosage: UNK
     Route: 048
     Dates: start: 20091228

REACTIONS (2)
  - CEREBROVASCULAR ACCIDENT [None]
  - EMBOLISM [None]
